FAERS Safety Report 13312195 (Version 2)
Quarter: 2017Q1

REPORT INFORMATION
  Report Type: Report from Study
  Country: US (occurrence: US)
  Receive Date: 20170309
  Receipt Date: 20170322
  Transmission Date: 20170428
  Serious: Yes (Hospitalization, Other)
  Sender: FDA-Public Use
  Company Number: US-JAZZ-2017-US-002847

PATIENT
  Age: 53 Year
  Sex: Male

DRUGS (1)
  1. XYREM [Suspect]
     Active Substance: SODIUM OXYBATE
     Indication: NARCOLEPSY
     Dosage: 3 G, BID
     Route: 048
     Dates: start: 20170221, end: 201702

REACTIONS (9)
  - Paranoia [Unknown]
  - Decreased appetite [Unknown]
  - Confusional state [Not Recovered/Not Resolved]
  - Affect lability [Unknown]
  - Loss of consciousness [Unknown]
  - Depression [Unknown]
  - Intentional product use issue [Unknown]
  - Change in sustained attention [Unknown]
  - Extra dose administered [Unknown]

NARRATIVE: CASE EVENT DATE: 20170223
